FAERS Safety Report 6015745-X (Version None)
Quarter: 2008Q4

REPORT INFORMATION
  Report Type: 
  Country: None (occurrence: None)
  Receive Date: 20081222
  Receipt Date: 20080716
  Transmission Date: 20090506
  Serious: No
  Sender: FDA-Public Use
  Company Number: US-BAYER-200813102BCC

PATIENT
  Age: 53 Year
  Sex: Male
  Weight: 129 kg

DRUGS (3)
  1. ALEVE [Suspect]
     Indication: BACK PAIN
     Dosage: TOTAL DAILY DOSE: 440 MG  UNIT DOSE: 220 MG
     Dates: start: 20080715
  2. LISINOPRIL [Concomitant]
  3. METOPROLOL [Concomitant]

REACTIONS (1)
  - BACK PAIN [None]
